FAERS Safety Report 7358939-3 (Version None)
Quarter: 2011Q1

REPORT INFORMATION
  Report Type: 
  Country: None (occurrence: None)
  Receive Date: 20110310
  Receipt Date: 20110303
  Transmission Date: 20110831
  Serious: Yes (Disabling)
  Sender: FDA-Public Use
  Company Number: 847551

PATIENT
  Age: 50 Year
  Sex: Male

DRUGS (8)
  1. DEXAMETHASONE [Suspect]
     Indication: T-CELL TYPE ACUTE LEUKAEMIA
  2. ACYCLOVIR [Concomitant]
  3. (RITUXIMAB) [Suspect]
     Indication: T-CELL TYPE ACUTE LEUKAEMIA
  4. CYCLOPHOSPHAMIDE [Suspect]
     Indication: T-CELL TYPE ACUTE LEUKAEMIA
  5. (CIPROFLOXACIN) [Concomitant]
  6. FLUCONAZOLE [Concomitant]
  7. VINCRISTINE SULFATE [Suspect]
     Indication: T-CELL TYPE ACUTE LEUKAEMIA
  8. (DOXORUBICIN) [Suspect]
     Indication: T-CELL TYPE ACUTE LEUKAEMIA

REACTIONS (3)
  - CYTOMEGALOVIRUS CHORIORETINITIS [None]
  - RETINAL HAEMORRHAGE [None]
  - TOXICITY TO VARIOUS AGENTS [None]
